FAERS Safety Report 20977798 (Version 1)
Quarter: 2022Q2

REPORT INFORMATION
  Report Type: Spontaneous
  Country: US (occurrence: US)
  Receive Date: 20220618
  Receipt Date: 20220618
  Transmission Date: 20220721
  Serious: No
  Sender: FDA-Public Use
  Company Number: US-UNITED THERAPEUTICS-UNT-2022-013288

PATIENT
  Sex: Female
  Weight: 127.3 kg

DRUGS (5)
  1. TYVASO [Suspect]
     Active Substance: TREPROSTINIL
     Indication: Product used for unknown indication
     Dosage: UNK
  2. UPTRAVI [Suspect]
     Active Substance: SELEXIPAG
     Indication: Pulmonary arterial hypertension
     Dosage: 400 ?G, BID (2 TIMES EVERY 1 DAY)
     Route: 048
  3. UPTRAVI [Suspect]
     Active Substance: SELEXIPAG
     Dosage: 800 ?G, BID (2 TIMES EVERY 1 DAY)
     Route: 048
  4. LETAIRIS [Concomitant]
     Active Substance: AMBRISENTAN
     Indication: Product used for unknown indication
     Dosage: UNK
     Route: 065
  5. ADCIRCA [Concomitant]
     Active Substance: TADALAFIL
     Indication: Product used for unknown indication
     Dosage: UNK
     Route: 065

REACTIONS (14)
  - Headache [Not Recovered/Not Resolved]
  - Head discomfort [Unknown]
  - Abdominal distension [Unknown]
  - Peripheral swelling [Unknown]
  - Cough [Unknown]
  - Diarrhoea [Unknown]
  - Hypertension [Unknown]
  - Malaise [Unknown]
  - Dysphonia [Unknown]
  - Dyspnoea exertional [Unknown]
  - Fatigue [Unknown]
  - Chest pain [Unknown]
  - Palpitations [Unknown]
  - Condition aggravated [Unknown]
